FAERS Safety Report 7204343-8 (Version None)
Quarter: 2010Q4

REPORT INFORMATION
  Report Type: 
  Country: None (occurrence: None)
  Receive Date: 20101230
  Receipt Date: 20101221
  Transmission Date: 20110411
  Serious: Yes (Other)
  Sender: FDA-Public Use
  Company Number: US-ROCHE-750398

PATIENT
  Sex: Male
  Weight: 84.5 kg

DRUGS (2)
  1. CAPECITABINE [Suspect]
     Indication: COLON CANCER
     Dosage: DOSAGE: FOUR TABLETS OF 500 MG TWICE DAILY. TWO WEEKS ON AND ONE WEEK OFF.
     Route: 048
     Dates: start: 20101207
  2. CAPECITABINE [Suspect]
     Dosage: TWO WEEKS ON AND TWO WEEKS OFF. LOWERED DOSAGE.
     Route: 048

REACTIONS (4)
  - ABASIA [None]
  - ABDOMINAL PAIN UPPER [None]
  - JOINT RANGE OF MOTION DECREASED [None]
  - NAUSEA [None]
